FAERS Safety Report 17951484 (Version 1)
Quarter: 2020Q2

REPORT INFORMATION
  Report Type: Spontaneous
  Country: CN (occurrence: CN)
  Receive Date: 20200626
  Receipt Date: 20200626
  Transmission Date: 20200714
  Serious: Yes (Other)
  Sender: FDA-Public Use
  Company Number: CN-SA-2020SA163251

PATIENT

DRUGS (3)
  1. TAMSULOSIN HYDROCHLORIDE. [Suspect]
     Active Substance: TAMSULOSIN HYDROCHLORIDE
     Indication: PRODUCT USED FOR UNKNOWN INDICATION
     Dosage: UNK
     Route: 048
  2. SOLIFENACIN SUCCINATE. [Suspect]
     Active Substance: SOLIFENACIN SUCCINATE
     Indication: POLLAKIURIA
     Dosage: 1 DF, QD
     Route: 048
     Dates: start: 20200501
  3. SOLIFENACIN SUCCINATE. [Suspect]
     Active Substance: SOLIFENACIN SUCCINATE
     Indication: MICTURITION URGENCY
     Dosage: 2 DF, QD ((10 MG), ONCE DAILY)
     Route: 048
     Dates: end: 20200616

REACTIONS (3)
  - Dysuria [Not Recovered/Not Resolved]
  - Drug ineffective [Unknown]
  - Urinary retention [Not Recovered/Not Resolved]

NARRATIVE: CASE EVENT DATE: 20200616
